FAERS Safety Report 14922352 (Version 3)
Quarter: 2018Q2

REPORT INFORMATION
  Report Type: Report from Study
  Country: CH (occurrence: CH)
  Receive Date: 20180522
  Receipt Date: 20180529
  Transmission Date: 20180711
  Serious: Yes (Death, Hospitalization)
  Sender: FDA-Public Use
  Company Number: CH-ROCHE-2105734

PATIENT
  Age: 83 Year
  Sex: Female

DRUGS (34)
  1. OBINUTUZUMAB. [Suspect]
     Active Substance: OBINUTUZUMAB
     Dosage: C1D8, START TIME 10:50 AND END TIME 14:15
     Route: 042
     Dates: start: 20150323, end: 20150323
  2. OBINUTUZUMAB. [Suspect]
     Active Substance: OBINUTUZUMAB
     Dosage: C1D15, START TIME 10:35 AND END TIME 13:55
     Route: 042
     Dates: start: 20150330, end: 20150330
  3. OBINUTUZUMAB. [Suspect]
     Active Substance: OBINUTUZUMAB
     Dosage: C5D1, START TIME 11:00 AND END TIME 14:30
     Route: 042
     Dates: start: 20150706, end: 20150706
  4. OBINUTUZUMAB. [Suspect]
     Active Substance: OBINUTUZUMAB
     Dosage: C6D1, START TIME 11:10 AND END TIME 14:25, LAST DOSE PRIOR TO SAE
     Route: 042
     Dates: start: 20150817, end: 20150817
  5. MESALAZIN [Concomitant]
     Active Substance: MESALAMINE
     Route: 048
     Dates: start: 20170322
  6. BENDAMUSTINE [Suspect]
     Active Substance: BENDAMUSTINE
     Indication: CHRONIC LYMPHOCYTIC LEUKAEMIA
     Dosage: ON DAYS 1 TO 2 OF EACH 28-DAY CYCLE FROM CYCLE 1 TO CYCLE 6 AS PER INVETIGATOR^S DISCRETION.
     Route: 042
  7. CHLORAMBUCIL [Suspect]
     Active Substance: CHLORAMBUCIL
     Dosage: C5D1, START TIME 15:00 AND END TIME 15:01
     Route: 048
     Dates: start: 20150706, end: 20150706
  8. OBINUTUZUMAB. [Suspect]
     Active Substance: OBINUTUZUMAB
     Dosage: C1D2, START TIME 11:30 AND END TIME 15:40
     Route: 042
     Dates: start: 20150317, end: 20150317
  9. OBINUTUZUMAB. [Suspect]
     Active Substance: OBINUTUZUMAB
     Dosage: C2D1, START TIME 16:25 AND END TIME 19:35
     Route: 042
     Dates: start: 20150413, end: 20150413
  10. CHLORAMBUCIL [Suspect]
     Active Substance: CHLORAMBUCIL
     Dosage: C1D15, START TIME 09:20 AND END TIME 09:21
     Route: 048
     Dates: start: 20150330, end: 20150330
  11. VALTREX [Concomitant]
     Active Substance: VALACYCLOVIR HYDROCHLORIDE
     Route: 065
     Dates: start: 20180404
  12. CIPROFLOXACIN. [Concomitant]
     Active Substance: CIPROFLOXACIN
     Route: 048
     Dates: start: 20170322
  13. CHLORAMBUCIL [Suspect]
     Active Substance: CHLORAMBUCIL
     Dosage: C3D1, START TIME 14:35 AND END TIME 14:36
     Route: 048
     Dates: start: 20150511, end: 20150511
  14. RITUXIMAB. [Suspect]
     Active Substance: RITUXIMAB
     Indication: CHRONIC LYMPHOCYTIC LEUKAEMIA
     Route: 065
  15. ALLOPURINOL. [Concomitant]
     Active Substance: ALLOPURINOL
     Route: 048
     Dates: start: 20180404
  16. DORZOLAMIDE HYDROCHLORIDE AND TIMOLOL MALEATE [Concomitant]
     Active Substance: DORZOLAMIDE HYDROCHLORIDE\TIMOLOL MALEATE
     Dosage: ROUTE: OCULAR
     Route: 065
     Dates: start: 20180120
  17. TOBRAMYCIN AND DEXAMETHASONE [Concomitant]
     Active Substance: DEXAMETHASONE\TOBRAMYCIN
     Dosage: ROUTE: OCULAR
     Route: 065
     Dates: start: 20180120
  18. CHLORAMBUCIL [Suspect]
     Active Substance: CHLORAMBUCIL
     Dosage: C3D15
     Route: 048
     Dates: start: 20150525, end: 20150525
  19. CHLORAMBUCIL [Suspect]
     Active Substance: CHLORAMBUCIL
     Dosage: C4D1
     Route: 048
     Dates: start: 20150608, end: 20150608
  20. CHLORAMBUCIL [Suspect]
     Active Substance: CHLORAMBUCIL
     Dosage: C6D1, START TIME 15:00 AND END TIME 15:01, DOSE REDUCED
     Route: 048
     Dates: start: 20150817, end: 20150817
  21. ALLOPURINOL. [Concomitant]
     Active Substance: ALLOPURINOL
     Route: 048
     Dates: start: 20150316, end: 20150330
  22. METRONIDAZOL [Concomitant]
     Active Substance: METRONIDAZOLE
     Route: 048
     Dates: start: 20170322
  23. OBINUTUZUMAB. [Suspect]
     Active Substance: OBINUTUZUMAB
     Indication: CHRONIC LYMPHOCYTIC LEUKAEMIA
     Dosage: C1D1, START TIME 11:00 AND END TIME 15:10
     Route: 042
     Dates: start: 20150316, end: 20150316
  24. OBINUTUZUMAB. [Suspect]
     Active Substance: OBINUTUZUMAB
     Dosage: C3D1, START TIME 10:35 AND END TIME 14:00
     Route: 042
     Dates: start: 20150511, end: 20150511
  25. CHLORAMBUCIL [Suspect]
     Active Substance: CHLORAMBUCIL
     Dosage: C4D15
     Route: 048
     Dates: start: 20150622, end: 20150622
  26. CHLORAMBUCIL [Suspect]
     Active Substance: CHLORAMBUCIL
     Dosage: C5D15
     Route: 048
     Dates: start: 20150720, end: 20150720
  27. CHLORAMBUCIL [Suspect]
     Active Substance: CHLORAMBUCIL
     Dosage: C6D15, DOSE REDUCED, LAST DOSE PRIOR TO SAE
     Route: 048
     Dates: start: 20150831, end: 20150831
  28. NOPIL FORTE [Concomitant]
     Active Substance: SULFAMETHOXAZOLE\TRIMETHOPRIM
     Dosage: 800 / 160MG (3 X PER WEEK)
     Route: 065
     Dates: start: 20180404
  29. OBINUTUZUMAB. [Suspect]
     Active Substance: OBINUTUZUMAB
     Dosage: C4D1, START TIME 11:00 AND END TIME 14:30
     Route: 042
     Dates: start: 20150608, end: 20150608
  30. CHLORAMBUCIL [Suspect]
     Active Substance: CHLORAMBUCIL
     Indication: CHRONIC LYMPHOCYTIC LEUKAEMIA
     Dosage: C1D1, START TIME 10:40 AND END TIME 10:41
     Route: 048
     Dates: start: 20150316, end: 20150316
  31. CHLORAMBUCIL [Suspect]
     Active Substance: CHLORAMBUCIL
     Dosage: C2D15, START TIME 10:30 AND END TIME 10:31
     Route: 048
     Dates: start: 20150427, end: 20150427
  32. CHLORAMBUCIL [Suspect]
     Active Substance: CHLORAMBUCIL
     Dosage: C2D1, START TIME 16:40 AND END TIME 16:41
     Route: 048
     Dates: start: 20150413, end: 20150413
  33. TOBRADEX [Concomitant]
     Active Substance: DEXAMETHASONE\TOBRAMYCIN
     Route: 065
     Dates: start: 20180120
  34. BEPANTHEN (SWITZERLAND) [Concomitant]
     Route: 065

REACTIONS (2)
  - Myocardial ischaemia [Fatal]
  - Pyrexia [Recovered/Resolved]

NARRATIVE: CASE EVENT DATE: 20180409
